FAERS Safety Report 20558147 (Version 1)
Quarter: 2022Q1

REPORT INFORMATION
  Report Type: Spontaneous
  Country: US (occurrence: US)
  Receive Date: 20220307
  Receipt Date: 20220307
  Transmission Date: 20220423
  Serious: No
  Sender: FDA-Public Use
  Company Number: US-BoehringerIngelheim-2022-BI-157127

PATIENT
  Age: 60 Year
  Sex: Female

DRUGS (2)
  1. JARDIANCE [Suspect]
     Active Substance: EMPAGLIFLOZIN
     Indication: Product used for unknown indication
  2. TRULICITY [Suspect]
     Active Substance: DULAGLUTIDE
     Indication: Diabetes mellitus
     Dosage: FORM STRENGTH:  0.75MG/0.5ML
     Route: 058
     Dates: start: 2021

REACTIONS (3)
  - Nephrolithiasis [Unknown]
  - Pain [Unknown]
  - Cystitis [Unknown]

NARRATIVE: CASE EVENT DATE: 20211225
